FAERS Safety Report 5578934-4 (Version None)
Quarter: 2008Q1

REPORT INFORMATION
  Report Type: 
  Country: None (occurrence: None)
  Receive Date: 20080102
  Receipt Date: 20071219
  Transmission Date: 20080703
  Serious: Yes (Hospitalization)
  Sender: FDA-Public Use
  Company Number: MX-AMGEN-US252593

PATIENT
  Sex: Male

DRUGS (5)
  1. PANITUMUMAB [Suspect]
     Indication: COLORECTAL CANCER
     Route: 042
     Dates: start: 20070503
  2. OXALIPLATIN [Concomitant]
  3. LEUCOVORIN [Concomitant]
  4. FLUOROURACIL [Concomitant]
     Route: 040
  5. FLUOROURACIL [Concomitant]

REACTIONS (1)
  - ANAL HAEMORRHAGE [None]
